FAERS Safety Report 7341188-2 (Version None)
Quarter: 2011Q1

REPORT INFORMATION
  Report Type: 
  Country: None (occurrence: None)
  Receive Date: 20110309
  Receipt Date: 20110302
  Transmission Date: 20110831
  Serious: Yes (Hospitalization)
  Sender: FDA-Public Use
  Company Number: B0704600A

PATIENT
  Age: 59 Year
  Sex: Male
  Weight: 80 kg

DRUGS (4)
  1. HYDROCHLOROTHIAZIDE + RAMIPRIL [Suspect]
     Indication: HYPERTENSION
     Route: 048
     Dates: start: 20050101
  2. RYTMONORM [Suspect]
     Indication: ATRIAL FIBRILLATION
     Dosage: 300MG TWICE PER DAY
     Route: 048
     Dates: start: 20101210, end: 20110201
  3. RAMIPRIL [Suspect]
     Indication: HYPERTENSION
     Dosage: 5MG PER DAY
     Route: 048
     Dates: start: 20050101
  4. ASPIRIN [Concomitant]
     Indication: ATRIAL FIBRILLATION
     Dosage: 100MG PER DAY
     Route: 048
     Dates: start: 20060101

REACTIONS (2)
  - FEBRILE NEUTROPENIA [None]
  - DRUG INTERACTION [None]
